FAERS Safety Report 9791398 (Version 1)
Quarter: 2014Q1

REPORT INFORMATION
  Report Type: Spontaneous
  Country: AU (occurrence: AU)
  Receive Date: 20140101
  Receipt Date: 20140101
  Transmission Date: 20141002
  Serious: Yes (Other)
  Sender: FDA-Public Use
  Company Number: PHHY2013AU149154

PATIENT
  Age: 8 Year
  Sex: Female

DRUGS (4)
  1. ZOLEDRONATE [Suspect]
     Dosage: 0.05 MG/KG, DILUTED IN 100 ML NORMAL SALINE
     Route: 042
  2. ZOLEDRONATE [Suspect]
     Dosage: 0.012 MG/KG, UNK
     Route: 042
  3. ZOLEDRONATE [Suspect]
     Dosage: 0.037 MG/KG, UNK
     Route: 042
  4. CALCITRIOL [Concomitant]
     Dosage: 250 NG, BID, WERE GIVEN FOR 3 DAYS

REACTIONS (2)
  - Radius fracture [Unknown]
  - Fall [Unknown]
